FAERS Safety Report 15239236 (Version 1)
Quarter: 2018Q3

REPORT INFORMATION
  Report Type: Spontaneous
  Country: CA (occurrence: CA)
  Receive Date: 20180803
  Receipt Date: 20180803
  Transmission Date: 20181010
  Serious: Yes (Other)
  Sender: FDA-Public Use
  Company Number: CA-PFIZER INC-2017423611

PATIENT
  Age: 29 Year
  Sex: Female

DRUGS (6)
  1. SANDOSTATIN [Concomitant]
     Active Substance: OCTREOTIDE ACETATE
     Dosage: 40 MG, EVERY 28 DAYS
     Route: 030
     Dates: start: 201607
  2. CORTEF [Suspect]
     Active Substance: HYDROCORTISONE
     Dosage: 10 MG AT MORNING AND 5 MG AT NIGHT, 2X/DAY
     Route: 048
  3. FERROUS SULFATE. [Concomitant]
     Active Substance: FERROUS SULFATE
     Dosage: 300 MG, DAILY
     Route: 048
  4. CORTEF [Suspect]
     Active Substance: HYDROCORTISONE
     Dosage: 15 MG, 2X/DAY 10 MG AM AND 5 MG PM
     Route: 064
  5. SANDOSTATIN [Concomitant]
     Active Substance: OCTREOTIDE ACETATE
     Dosage: 20MG, EVERY 28 DAYS
     Route: 030
  6. SYNTHROID [Concomitant]
     Active Substance: LEVOTHYROXINE SODIUM
     Dosage: 0.15 MG, DAILY
     Route: 048

REACTIONS (2)
  - Insulin-like growth factor increased [Unknown]
  - Monoplegia [Unknown]
